FAERS Safety Report 4287047-3 (Version None)
Quarter: 2004Q1

REPORT INFORMATION
  Report Type: 
  Country: None (occurrence: None)
  Receive Date: 20040204
  Receipt Date: 20040123
  Transmission Date: 20041129
  Serious: Yes (Death, Life-Threatening, Hospitalization, Other)
  Sender: FDA-Public Use
  Company Number: 2004005317

PATIENT
  Age: 54 Year
  Sex: Female
  Weight: 50 kg

DRUGS (5)
  1. MAGNEX (CEFOPERAZONE, SULBACTAM) [Suspect]
     Indication: SEPSIS
     Dosage: 6 GRAM (TID), INTRAVENOUS
     Route: 042
     Dates: start: 20031227, end: 20040102
  2. OFLOXACIN HYDROCHLORIDE (OFLOXACIN HYDROCHLORIDE) [Concomitant]
  3. CEFTRIAXONE [Suspect]
  4. CEFEPIME (CEFEPIME) [Concomitant]
  5. FLUCONAZOLE [Concomitant]

REACTIONS (2)
  - HAEMOGLOBIN DECREASED [None]
  - PLATELET COUNT DECREASED [None]
